FAERS Safety Report 9797120 (Version 1)
Quarter: 2013Q4

REPORT INFORMATION
  Report Type: Spontaneous
  Country: FR (occurrence: None)
  Receive Date: 20131230
  Receipt Date: 20131230
  Transmission Date: 20140711
  Serious: Yes (Death, Hospitalization)
  Sender: FDA-Public Use
  Company Number: SYM-2013-14234

PATIENT
  Age: 65 Year
  Sex: Female

DRUGS (12)
  1. ZOVIRAX (ACICLOVIR) [Suspect]
     Indication: MENINGOENCEPHALITIS HERPETIC
     Dates: start: 20131123, end: 20131125
  2. FORTUM (CEFTAZIDIME) (INJECTION) (CEFTAZIDIME) [Suspect]
     Indication: PROPHYLAXIS
     Route: 042
     Dates: start: 20131122, end: 20131125
  3. TAVANIC (LEVOFLOXACIN (LEVOFLOXACIN) [Suspect]
     Indication: INFECTION
     Route: 042
     Dates: start: 20131118, end: 20131125
  4. XANAX [Suspect]
     Indication: ANXIETY
     Route: 048
     Dates: start: 20131115, end: 20131125
  5. ENDOXAN (CYCLOPHOSPHAMIDE) (CYCLOPHOSPHAMIDE) [Concomitant]
  6. HYDRATION THERAPY (OTHER THERAPEUTIC PRODUCTS) [Concomitant]
  7. MESNA (MESNA) [Concomitant]
  8. TOPALGIC (TRAMADOL HYDROCHLORIDE) [Concomitant]
  9. PHOSPHONEUROS (PHOSPHONEUROS) (MAGNESIUM GLYCEROPHOSPHATE, SODIUM PHOSPHATE DIBASIC, PHOSPHORIC ACID, CALCIUM PHOSPHATE DIBASIC) [Concomitant]
  10. AVLOCARDYL (PROPRANOLOL HYDROCHLORIDE) [Concomitant]
  11. CEFTRIAXONE [Concomitant]
  12. BUSILVEX (BUSULFAN) [Concomitant]

REACTIONS (10)
  - Stevens-Johnson syndrome [None]
  - Blood pressure decreased [None]
  - Heart rate increased [None]
  - Hypoxia [None]
  - Cardio-respiratory arrest [None]
  - Arrhythmia [None]
  - Respiratory distress [None]
  - Hepatic pain [None]
  - Jaundice [None]
  - Altered state of consciousness [None]
